FAERS Safety Report 8601139-7 (Version None)
Quarter: 2012Q3

REPORT INFORMATION
  Report Type: 
  Country: None (occurrence: None)
  Receive Date: 20120806
  Receipt Date: 20120725
  Transmission Date: 20120928
  Serious: Yes (Death, Hospitalization, Other)
  Sender: FDA-Public Use
  Company Number: 2012MA009131

PATIENT
  Age: 58 Year
  Sex: Female

DRUGS (6)
  1. BENZODIAZEPINE [Suspect]
     Indication: COMPLETED SUICIDE
     Dosage: PO
     Route: 048
  2. BENZODIAZEPINE [Suspect]
     Indication: INTENTIONAL DRUG MISUSE
     Dosage: PO
     Route: 048
  3. METOPROLOL TARTRATE [Suspect]
     Indication: COMPLETED SUICIDE
     Dosage: 400 MG, PO
     Route: 048
  4. METOPROLOL TARTRATE [Suspect]
     Indication: INTENTIONAL DRUG MISUSE
     Dosage: 400 MG, PO
     Route: 048
  5. KADIAN [Suspect]
     Indication: COMPLETED SUICIDE
     Dosage: PO
     Route: 048
  6. KADIAN [Suspect]
     Indication: INTENTIONAL DRUG MISUSE
     Dosage: PO
     Route: 048

REACTIONS (10)
  - NO THERAPEUTIC RESPONSE [None]
  - PYREXIA [None]
  - UNRESPONSIVE TO STIMULI [None]
  - HYPOXIA [None]
  - AREFLEXIA [None]
  - BRADYCARDIA [None]
  - HYPOTENSION [None]
  - MIOSIS [None]
  - HYPERTENSION [None]
  - SUICIDE ATTEMPT [None]
